FAERS Safety Report 4502393-3 (Version None)
Quarter: 2004Q4

REPORT INFORMATION
  Report Type: 
  Country: None (occurrence: None)
  Receive Date: 20041110
  Receipt Date: 20041025
  Transmission Date: 20050328
  Serious: Yes (Hospitalization)
  Sender: FDA-Public Use
  Company Number: T04-GER-07297-01

PATIENT
  Age: 74 Year
  Sex: Male

DRUGS (10)
  1. CITALOPRAM HYDROBROMIDE [Suspect]
     Dosage: 40 MG QD PO
     Route: 048
     Dates: start: 20030307
  2. CITALOPRAM HYDROBROMIDE [Suspect]
     Dosage: 20 MG QD PO
     Route: 048
     Dates: start: 20021001, end: 20030306
  3. CITALOPRAM HYDROBROMIDE [Suspect]
     Dosage: 40 MG QD PO
     Route: 048
     Dates: start: 20020701, end: 20021001
  4. ZYPREXA [Suspect]
     Dates: start: 20030307, end: 20030310
  5. ZYPREXA [Suspect]
     Dates: start: 20020701, end: 20021001
  6. TAVOR (LORAZEPAM) [Concomitant]
  7. ALLOPURINOL [Concomitant]
  8. ACETYLSALICYLIC ACID SRT [Concomitant]
  9. CARBIMAZOLE [Concomitant]
  10. SEROQUEL [Concomitant]

REACTIONS (3)
  - DRUG INTERACTION [None]
  - DYSTONIA [None]
  - PLEUROTHOTONUS [None]
